FAERS Safety Report 6814024-8 (Version None)
Quarter: 2010Q3

REPORT INFORMATION
  Report Type: 
  Country: None (occurrence: None)
  Receive Date: 20100702
  Receipt Date: 20100618
  Transmission Date: 20110219
  Serious: Yes (Other)
  Sender: FDA-Public Use
  Company Number: PHHY2010GB17609

PATIENT
  Sex: Female

DRUGS (1)
  1. ALISKIREN [Suspect]
     Dosage: 150 MG, UNK

REACTIONS (4)
  - EYE INFECTION [None]
  - HYPERTENSION [None]
  - ORAL HERPES [None]
  - PAIN IN EXTREMITY [None]
